FAERS Safety Report 6196618-9 (Version None)
Quarter: 2009Q2

REPORT INFORMATION
  Report Type: 
  Country: None (occurrence: None)
  Receive Date: 20090520
  Receipt Date: 20090511
  Transmission Date: 20091009
  Serious: Yes (Congenital Anomaly)
  Sender: FDA-Public Use
  Company Number: A0680445A

PATIENT
  Sex: Male
  Weight: 2.5 kg

DRUGS (2)
  1. PAXIL CR [Suspect]
     Indication: DEPRESSION
     Dosage: 12.5MG PER DAY
     Dates: start: 20040101
  2. VITAMIN AND MINERAL PRENATAL SUPPLEMENT W/ FOLIC ACID CAP [Concomitant]

REACTIONS (13)
  - CARDIAC HYPERTROPHY [None]
  - CONGENITAL ANOMALY [None]
  - CONGENITAL CYSTIC KIDNEY DISEASE [None]
  - DEVELOPMENTAL DELAY [None]
  - DRUG EXPOSURE DURING PREGNANCY [None]
  - HYPOGLYCAEMIA [None]
  - PNEUMONIA [None]
  - PREMATURE BABY [None]
  - RENAL DYSPLASIA [None]
  - RENAL IMPAIRMENT [None]
  - SPEECH DISORDER DEVELOPMENTAL [None]
  - TACHYCARDIA FOETAL [None]
  - TRICUSPID VALVE INCOMPETENCE [None]
